FAERS Safety Report 16413564 (Version 2)
Quarter: 2019Q2

REPORT INFORMATION
  Report Type: Report from Study
  Country: US (occurrence: US)
  Receive Date: 20190611
  Receipt Date: 20190625
  Transmission Date: 20190711
  Serious: Yes (Hospitalization, Other)
  Sender: FDA-Public Use
  Company Number: US-ROCHE-2145441

PATIENT
  Age: 55 Year
  Sex: Female
  Weight: 77.18 kg

DRUGS (1)
  1. OCREVUS [Suspect]
     Active Substance: OCRELIZUMAB
     Indication: RELAPSING MULTIPLE SCLEROSIS
     Route: 065
     Dates: start: 20171128

REACTIONS (12)
  - Neuropathy peripheral [Unknown]
  - Herpes zoster [Unknown]
  - Muscular weakness [Unknown]
  - Rash [Not Recovered/Not Resolved]
  - Pain in extremity [Unknown]
  - Paraesthesia [Unknown]
  - Stress [Not Recovered/Not Resolved]
  - Herpes virus infection [Not Recovered/Not Resolved]
  - Pyrexia [Not Recovered/Not Resolved]
  - Multiple sclerosis [Not Recovered/Not Resolved]
  - Cough [Unknown]
  - Oropharyngeal pain [Unknown]

NARRATIVE: CASE EVENT DATE: 2018
